FAERS Safety Report 18585962 (Version 1)
Quarter: 2020Q4

REPORT INFORMATION
  Report Type: Spontaneous
  Country: IN (occurrence: IN)
  Receive Date: 20201207
  Receipt Date: 20201207
  Transmission Date: 20210114
  Serious: Yes (Other)
  Sender: FDA-Public Use
  Company Number: IN-MYLANLABS-2020M1099988

PATIENT
  Age: 61 Year
  Sex: Male

DRUGS (3)
  1. LIDOCAINE. [Suspect]
     Active Substance: LIDOCAINE
     Indication: LOCAL ANAESTHESIA
     Dosage: UNK
     Route: 065
  2. ISOPROPYL ALCOHOL. [Suspect]
     Active Substance: ISOPROPYL ALCOHOL
     Indication: MEDICAL PROCEDURE
     Dosage: SWAB
     Route: 065
  3. EPINEPHRINE MYLAN [Suspect]
     Active Substance: EPINEPHRINE
     Indication: LOCAL ANAESTHESIA
     Dosage: UNK
     Route: 065

REACTIONS (2)
  - Pemphigoid [Recovered/Resolved]
  - Condition aggravated [Recovered/Resolved]
